FAERS Safety Report 19323460 (Version 1)
Quarter: 2021Q2

REPORT INFORMATION
  Report Type: Spontaneous
  Country: US (occurrence: US)
  Receive Date: 20210528
  Receipt Date: 20210528
  Transmission Date: 20210717
  Serious: No
  Sender: FDA-Public Use
  Company Number: US-009507513-2105USA004224

PATIENT
  Age: 65 Year
  Sex: Male

DRUGS (20)
  1. REBETOL [Suspect]
     Active Substance: RIBAVIRIN
     Indication: PENICILLIUM INFECTION
  2. VORICONAZOLE. [Concomitant]
     Active Substance: VORICONAZOLE
     Indication: PENICILLIUM INFECTION
  3. VORICONAZOLE. [Concomitant]
     Active Substance: VORICONAZOLE
     Indication: ENTEROBACTER INFECTION
  4. AMPHOTERICIN B LIPID COMPLEX [Concomitant]
     Active Substance: AMPHOTERICIN B
     Indication: PENICILLIUM INFECTION
  5. REBETOL [Suspect]
     Active Substance: RIBAVIRIN
     Indication: ENTEROBACTER INFECTION
  6. REBETOL [Suspect]
     Active Substance: RIBAVIRIN
     Indication: RESPIRATORY SYNCYTIAL VIRUS INFECTION
  7. AMPHOTERICIN B LIPID COMPLEX [Concomitant]
     Active Substance: AMPHOTERICIN B
     Indication: ENTEROBACTER INFECTION
  8. AMPHOTERICIN B LIPID COMPLEX [Concomitant]
     Active Substance: AMPHOTERICIN B
     Indication: CORONAVIRUS INFECTION
  9. REBETOL [Suspect]
     Active Substance: RIBAVIRIN
     Indication: CORONAVIRUS INFECTION
  10. SULFAMETHOXAZOLE;TRIMETHOPRIM [Concomitant]
     Active Substance: SULFAMETHOXAZOLE\TRIMETHOPRIM
     Indication: ENTEROBACTER INFECTION
  11. SULFAMETHOXAZOLE;TRIMETHOPRIM [Concomitant]
     Active Substance: SULFAMETHOXAZOLE\TRIMETHOPRIM
     Indication: RESPIRATORY SYNCYTIAL VIRUS INFECTION
  12. SULFAMETHOXAZOLE;TRIMETHOPRIM [Concomitant]
     Active Substance: SULFAMETHOXAZOLE\TRIMETHOPRIM
     Indication: CORONAVIRUS INFECTION
  13. VORICONAZOLE. [Concomitant]
     Active Substance: VORICONAZOLE
     Indication: CANDIDA INFECTION
     Dosage: 300 MILLIGRAM, TWICE DAILY
     Route: 042
  14. VORICONAZOLE. [Concomitant]
     Active Substance: VORICONAZOLE
     Indication: CORONAVIRUS INFECTION
  15. SULFAMETHOXAZOLE;TRIMETHOPRIM [Concomitant]
     Active Substance: SULFAMETHOXAZOLE\TRIMETHOPRIM
     Indication: CANDIDA INFECTION
     Dosage: UNK
  16. SULFAMETHOXAZOLE;TRIMETHOPRIM [Concomitant]
     Active Substance: SULFAMETHOXAZOLE\TRIMETHOPRIM
     Indication: PENICILLIUM INFECTION
  17. AMPHOTERICIN B LIPID COMPLEX [Concomitant]
     Active Substance: AMPHOTERICIN B
     Indication: CANDIDA INFECTION
     Dosage: 50 MILLIGRAM, THREE TIMES PER WEEK
  18. REBETOL [Suspect]
     Active Substance: RIBAVIRIN
     Indication: CANDIDA INFECTION
     Dosage: 400 MG, DAILY, X14 DAYS
     Route: 048
  19. VORICONAZOLE. [Concomitant]
     Active Substance: VORICONAZOLE
     Indication: RESPIRATORY SYNCYTIAL VIRUS INFECTION
  20. AMPHOTERICIN B LIPID COMPLEX [Concomitant]
     Active Substance: AMPHOTERICIN B
     Indication: RESPIRATORY SYNCYTIAL VIRUS INFECTION

REACTIONS (1)
  - Off label use [Unknown]
